FAERS Safety Report 7072821-0 (Version None)
Quarter: 2010Q4

REPORT INFORMATION
  Report Type: 
  Country: None (occurrence: None)
  Receive Date: 20101029
  Receipt Date: 20100317
  Transmission Date: 20110411
  Serious: No
  Sender: FDA-Public Use
  Company Number: A0850672A

PATIENT
  Age: 62 Year
  Sex: Female

DRUGS (2)
  1. ADVAIR DISKUS 100/50 [Suspect]
     Indication: CHRONIC OBSTRUCTIVE PULMONARY DISEASE
     Dosage: 1PUFF TWICE PER DAY
     Route: 055
     Dates: start: 20090301
  2. VENTOLIN [Concomitant]

REACTIONS (5)
  - CHEST DISCOMFORT [None]
  - DRUG INEFFECTIVE [None]
  - DYSPNOEA [None]
  - MUSCULOSKELETAL PAIN [None]
  - MYALGIA [None]
